FAERS Safety Report 12639200 (Version 5)
Quarter: 2017Q3

REPORT INFORMATION
  Report Type: Report from Study
  Country: CN (occurrence: CN)
  Receive Date: 20160810
  Receipt Date: 20170901
  Transmission Date: 20171127
  Serious: Yes (Death, Life-Threatening, Hospitalization)
  Sender: FDA-Public Use
  Company Number: CN-BAXTER-2016BAX041606

PATIENT
  Age: 76 Year
  Sex: Male

DRUGS (3)
  1. PERITONEAL DIALYSIS SOLUTION (LACTATE- G1.5%) [Suspect]
     Active Substance: CALCIUM CHLORIDE\DEXTROSE\MAGNESIUM CHLORIDE\SODIUM CHLORIDE\SODIUM LACTATE
     Indication: PERITONEAL DIALYSIS
     Route: 033
     Dates: start: 20150729
  2. PERITONEAL DIALYSIS SOLUTION (LACTATE- G1.5%) [Suspect]
     Active Substance: CALCIUM CHLORIDE\DEXTROSE\MAGNESIUM CHLORIDE\SODIUM CHLORIDE\SODIUM LACTATE
     Dosage: DOSE REDUCED
     Route: 033
  3. PERITONEAL DIALYSIS SOLUTION (LACTATE- G1.5%) [Suspect]
     Active Substance: CALCIUM CHLORIDE\DEXTROSE\MAGNESIUM CHLORIDE\SODIUM CHLORIDE\SODIUM LACTATE
     Dosage: DOSE REDUCED
     Route: 033

REACTIONS (3)
  - Myocardial infarction [Fatal]
  - Peritonitis [Fatal]
  - Acute myocardial infarction [Recovered/Resolved with Sequelae]

NARRATIVE: CASE EVENT DATE: 20160622
